FAERS Safety Report 18920511 (Version 3)
Quarter: 2022Q2

REPORT INFORMATION
  Report Type: Report from Study
  Country: US (occurrence: None)
  Receive Date: 20210222
  Receipt Date: 20220412
  Transmission Date: 20220721
  Serious: Yes (Hospitalization)
  Sender: FDA-Public Use
  Company Number: US-ROCHE-2766357

PATIENT
  Age: 68 Year
  Sex: Female
  Weight: 79.9 kg

DRUGS (14)
  1. COBIMETINIB [Suspect]
     Active Substance: COBIMETINIB
     Indication: Non-small cell lung cancer
     Dosage: ON 21/JAN/2021, SHE RECEIVED MOST RECENT DOSE OF COBIMETINIB PRIOR TO EVENT ONSET.
     Route: 048
     Dates: start: 20210106, end: 20210127
  2. SERTRALINE [Concomitant]
     Active Substance: SERTRALINE HYDROCHLORIDE
     Route: 048
  3. ATORVASTATIN [Concomitant]
     Active Substance: ATORVASTATIN
     Route: 048
     Dates: start: 20201201
  4. SENNA LEAF [Concomitant]
     Active Substance: SENNA LEAF
  5. COLACE [Concomitant]
     Active Substance: DOCUSATE SODIUM
     Dates: start: 20201201
  6. TYLENOL [Concomitant]
     Active Substance: ACETAMINOPHEN
  7. OXYCODONE [Concomitant]
     Active Substance: OXYCODONE
     Route: 048
     Dates: start: 20210106
  8. OMEPRAZOLE [Concomitant]
     Active Substance: OMEPRAZOLE
     Route: 048
     Dates: start: 20210106
  9. FERROUS SULFATE [Concomitant]
     Active Substance: FERROUS SULFATE
  10. LACTULOSE [Concomitant]
     Active Substance: LACTULOSE
  11. MS CONTIN [Concomitant]
     Active Substance: MORPHINE SULFATE
  12. PROCHLORPERAZINE [Concomitant]
     Active Substance: PROCHLORPERAZINE
  13. PREDNISONE [Concomitant]
     Active Substance: PREDNISONE
  14. SULFAMETHOXAZOLE\TRIMETHOPRIM [Concomitant]
     Active Substance: SULFAMETHOXAZOLE\TRIMETHOPRIM

REACTIONS (1)
  - Pneumonia [Recovered/Resolved]

NARRATIVE: CASE EVENT DATE: 20210127
